FAERS Safety Report 6140960-4 (Version None)
Quarter: 2009Q2

REPORT INFORMATION
  Report Type: 
  Country: None (occurrence: None)
  Receive Date: 20090402
  Receipt Date: 20090327
  Transmission Date: 20091009
  Serious: Yes (Hospitalization)
  Sender: FDA-Public Use
  Company Number: US-AVENTIS-200912509US

PATIENT
  Sex: Male

DRUGS (2)
  1. LOVENOX [Suspect]
     Dates: start: 20090326, end: 20090326
  2. UNKNOWN DRUG [Concomitant]
     Dosage: DOSE: UNK

REACTIONS (2)
  - ANTICOAGULATION DRUG LEVEL ABOVE THERAPEUTIC [None]
  - INTENTIONAL OVERDOSE [None]
